FAERS Safety Report 18388624 (Version 2)
Quarter: 2021Q4

REPORT INFORMATION
  Report Type: Report from Study
  Country: US (occurrence: US)
  Receive Date: 20201015
  Receipt Date: 20211004
  Transmission Date: 20220303
  Serious: Yes (Hospitalization, Other)
  Sender: FDA-Public Use
  Company Number: US-TAKEDA-2020TUS042873

PATIENT
  Sex: Male
  Weight: 82 kg

DRUGS (2)
  1. VEDOLIZUMAB [Suspect]
     Active Substance: VEDOLIZUMAB
     Indication: Crohn^s disease
     Dosage: UNK
     Route: 065
  2. VEDOLIZUMAB [Suspect]
     Active Substance: VEDOLIZUMAB
     Dosage: UNK, Q4WEEKS
     Route: 065

REACTIONS (10)
  - Acute kidney injury [Unknown]
  - Gastrointestinal stoma output increased [Unknown]
  - Crohn^s disease [Unknown]
  - Swollen tongue [Unknown]
  - Blood pressure decreased [Unknown]
  - Weight decreased [Unknown]
  - Vomiting [Unknown]
  - Blood potassium increased [Unknown]
  - Drug level decreased [Unknown]
  - Off label use [Unknown]
